FAERS Safety Report 13547809 (Version 1)
Quarter: 2017Q2

REPORT INFORMATION
  Report Type: Spontaneous
  Country: US (occurrence: US)
  Receive Date: 20170516
  Receipt Date: 20170516
  Transmission Date: 20170830
  Serious: No
  Sender: FDA-Public Use
  Company Number: US-BAUSCH-BL-2017-005160

PATIENT
  Age: 67 Year
  Sex: Female
  Weight: 79.9 kg

DRUGS (4)
  1. LATANOPROST OPHTHALMIC SOLUTION 0.005% [Suspect]
     Active Substance: LATANOPROST
     Indication: GLAUCOMA
     Dosage: EACH EYE AT BEDTIME
     Route: 031
     Dates: start: 20170123
  2. METHOTREXATE. [Concomitant]
     Active Substance: METHOTREXATE
     Indication: MULTIPLE SCLEROSIS
     Route: 048
  3. TEMAZEPAM. [Concomitant]
     Active Substance: TEMAZEPAM
     Indication: SLEEP DISORDER
     Dosage: AT BED TIME
     Route: 048
  4. MULTIVITAMINS [Concomitant]
     Active Substance: VITAMINS
     Indication: SUPPLEMENTATION THERAPY
     Route: 048

REACTIONS (1)
  - Instillation site pain [Recovered/Resolved]

NARRATIVE: CASE EVENT DATE: 20170123
